FAERS Safety Report 4703527-8 (Version None)
Quarter: 2005Q2

REPORT INFORMATION
  Report Type: 
  Country: None (occurrence: None)
  Receive Date: 20050630
  Receipt Date: 20050601
  Transmission Date: 20051028
  Serious: Yes (Hospitalization)
  Sender: FDA-Public Use
  Company Number: US-BOEHRINGER INGELHEIM PHARMACEUTICALS, INC.-2005-BP-08993BP

PATIENT
  Sex: Female

DRUGS (11)
  1. COMBIVENT [Suspect]
     Indication: CHRONIC OBSTRUCTIVE PULMONARY DISEASE
     Route: 055
  2. COMBIVENT [Suspect]
     Indication: ASTHMA
  3. WARFARIN [Concomitant]
  4. HYZAAR [Concomitant]
  5. CATAPRES [Concomitant]
  6. NITRO PATCHES [Concomitant]
  7. EVISTA [Concomitant]
  8. SEREVENT [Concomitant]
  9. FLOVENT [Concomitant]
  10. THYROID TABS [Concomitant]
  11. ASPIRIN [Concomitant]

REACTIONS (4)
  - ASTHMA [None]
  - MEDICAL DEVICE COMPLICATION [None]
  - PHARMACEUTICAL PRODUCT COMPLAINT [None]
  - THROMBOSIS [None]
